FAERS Safety Report 14434263 (Version 1)
Quarter: 2018Q1

REPORT INFORMATION
  Report Type: Other
  Country: GB (occurrence: GB)
  Receive Date: 20180124
  Receipt Date: 20180124
  Transmission Date: 20180509
  Serious: Yes (Hospitalization)
  Sender: FDA-Public Use
  Company Number: GB-BIO PRODUCTS LABORATORY LTD-2040743

PATIENT
  Age: 40 Year
  Sex: Male

DRUGS (5)
  1. ANTILYMPHOCYTE SERUM [Suspect]
     Active Substance: THYMOCYTE IMMUNE GLOBULIN NOS
  2. MYCOPHENOLATE MOFETIL. [Concomitant]
     Active Substance: MYCOPHENOLATE MOFETIL
  3. TACROLIMUS. [Concomitant]
     Active Substance: TACROLIMUS
  4. MEPREDNISONE [Suspect]
     Active Substance: MEPREDNISONE
  5. HUMAN NORMAL IMMUNOGLOBULIN [Suspect]
     Active Substance: HUMAN IMMUNOGLOBULIN G
     Indication: MULTIPLE ORGAN TRANSPLANT REJECTION

REACTIONS (4)
  - Skin lesion [Unknown]
  - Pain [Unknown]
  - Peripheral swelling [Unknown]
  - Pyrexia [Unknown]
